FAERS Safety Report 6171926-6 (Version None)
Quarter: 2009Q2

REPORT INFORMATION
  Report Type: 
  Country: None (occurrence: None)
  Receive Date: 20090424
  Receipt Date: 20090202
  Transmission Date: 20091009
  Serious: No
  Sender: FDA-Public Use
  Company Number: ALL1-2009-00264

PATIENT
  Age: 6 Year
  Sex: Male
  Weight: 25.4 kg

DRUGS (2)
  1. VYVANSE [Suspect]
     Indication: ATTENTION DEFICIT/HYPERACTIVITY DISORDER
     Dosage: 20 MG, 1X/DAY:QD, ORAL ; 1X/DAY:QD (1/2 OF A 20MG CAPSULE), ORAL
     Route: 048
     Dates: start: 20090131, end: 20090131
  2. VYVANSE [Suspect]
     Indication: ATTENTION DEFICIT/HYPERACTIVITY DISORDER
     Dosage: 20 MG, 1X/DAY:QD, ORAL ; 1X/DAY:QD (1/2 OF A 20MG CAPSULE), ORAL
     Route: 048
     Dates: start: 20090201

REACTIONS (5)
  - ABDOMINAL PAIN UPPER [None]
  - INSOMNIA [None]
  - PYREXIA [None]
  - TREMOR [None]
  - WRONG TECHNIQUE IN DRUG USAGE PROCESS [None]
